FAERS Safety Report 16357200 (Version 2)
Quarter: 2019Q2

REPORT INFORMATION
  Report Type: Spontaneous
  Country: FR (occurrence: FR)
  Receive Date: 20190527
  Receipt Date: 20190627
  Transmission Date: 20190711
  Serious: Yes (Life-Threatening)
  Sender: FDA-Public Use
  Company Number: FR-ACCORD-129388

PATIENT
  Age: 33 Year
  Sex: Female
  Weight: 50 kg

DRUGS (7)
  1. FUROSEMIDE. [Suspect]
     Active Substance: FUROSEMIDE
     Indication: FIDUCIAL MARKER PLACEMENT
     Route: 042
     Dates: start: 20190323, end: 20190323
  2. ETOMIDATE LIPURO [Suspect]
     Active Substance: ETOMIDATE
     Indication: INDUCTION OF ANAESTHESIA
     Route: 042
     Dates: start: 20190323, end: 20190323
  3. BLUE PATENT V SODIUM GUERBET [Suspect]
     Active Substance: PATENT BLUE V
     Indication: DIAGNOSTIC PROCEDURE
     Dosage: STRENGTH: 2.5 PERCENT
     Route: 051
     Dates: start: 20190323, end: 20190323
  4. FIBRYGA [Suspect]
     Active Substance: FIBRINOGEN HUMAN
     Indication: DISSEMINATED INTRAVASCULAR COAGULATION
     Dosage: BATCH NO: K821A3492
     Route: 042
     Dates: start: 20190323, end: 20190323
  5. CEFAZOLIN [Suspect]
     Active Substance: CEFAZOLIN
     Indication: ANTIBIOTIC PROPHYLAXIS
     Route: 042
     Dates: start: 20190323, end: 20190323
  6. SUFENTANIL [Suspect]
     Active Substance: SUFENTANIL
     Indication: INDUCTION OF ANAESTHESIA
     Route: 042
     Dates: start: 20190323, end: 20190323
  7. NOREPINEPHRINE. [Concomitant]
     Active Substance: NOREPINEPHRINE

REACTIONS (2)
  - Anaphylactic shock [Recovered/Resolved]
  - Off label use [Unknown]

NARRATIVE: CASE EVENT DATE: 20190323
